FAERS Safety Report 10046891 (Version 1)
Quarter: 2014Q1

REPORT INFORMATION
  Report Type: Report from Study
  Country: US (occurrence: US)
  Receive Date: 20140331
  Receipt Date: 20140331
  Transmission Date: 20141002
  Serious: Yes (Death)
  Sender: FDA-Public Use
  Company Number: PHEH2014US006130

PATIENT
  Age: 58 Year
  Sex: Female

DRUGS (1)
  1. ZORTRESS [Suspect]
     Indication: LIVER TRANSPLANT
     Dosage: 0.5 UKN, QD
     Route: 048

REACTIONS (1)
  - Death [Fatal]
